FAERS Safety Report 6980056-2 (Version None)
Quarter: 2010Q3

REPORT INFORMATION
  Report Type: 
  Country: None (occurrence: None)
  Receive Date: 20100914
  Receipt Date: 20100909
  Transmission Date: 20110219
  Serious: Yes (Death, Other)
  Sender: FDA-Public Use
  Company Number: FR-WYE-G06646410

PATIENT
  Sex: Female

DRUGS (1)
  1. TORISEL [Suspect]
     Indication: MANTLE CELL LYMPHOMA
     Dosage: UNKNOWN
     Route: 042

REACTIONS (3)
  - DEATH [None]
  - HERPES ZOSTER [None]
  - MENINGITIS HERPES [None]
